FAERS Safety Report 8191438-8 (Version None)
Quarter: 2012Q1

REPORT INFORMATION
  Report Type: 
  Country: None (occurrence: None)
  Receive Date: 20120307
  Receipt Date: 20120118
  Transmission Date: 20120608
  Serious: No
  Sender: FDA-Public Use
  Company Number: US-ASTRAZENECA-2011SE42758

PATIENT
  Age: 56 Year
  Sex: Female

DRUGS (2)
  1. ZOMIG [Suspect]
     Route: 048
  2. ZOMIG [Suspect]
     Route: 048

REACTIONS (5)
  - OROPHARYNGEAL PAIN [None]
  - INFLUENZA [None]
  - HEADACHE [None]
  - ROAD TRAFFIC ACCIDENT [None]
  - MALAISE [None]
